FAERS Safety Report 8572998-1 (Version None)
Quarter: 2012Q3

REPORT INFORMATION
  Report Type: 
  Country: None (occurrence: None)
  Receive Date: 20120806
  Receipt Date: 20120802
  Transmission Date: 20120928
  Serious: Yes (Other)
  Sender: FDA-Public Use
  Company Number: US-PFIZER INC-2012189442

PATIENT
  Age: 30 Year
  Sex: Male

DRUGS (1)
  1. ZOLOFT [Suspect]
     Indication: AGGRESSION
     Dosage: 25 MG, UNK
     Dates: start: 20120301, end: 20120101

REACTIONS (1)
  - NERVOUS SYSTEM DISORDER [None]
